FAERS Safety Report 9218236 (Version 2)
Quarter: 2013Q2

REPORT INFORMATION
  Report Type: Spontaneous
  Country: US (occurrence: US)
  Receive Date: 20130408
  Receipt Date: 20130410
  Transmission Date: 20140414
  Serious: No
  Sender: FDA-Public Use
  Company Number: US-009507513-1304USA001307

PATIENT
  Age: 55 Year
  Sex: Male

DRUGS (4)
  1. VICTRELIS [Suspect]
     Indication: HEPATITIS C
     Dosage: 800 MG DAILY
     Route: 048
     Dates: start: 20130329
  2. RIBASPHERE [Suspect]
  3. PEGASYS [Suspect]
  4. NEUPOGEN [Concomitant]

REACTIONS (2)
  - Injection site haemorrhage [Not Recovered/Not Resolved]
  - Cough [Not Recovered/Not Resolved]
